FAERS Safety Report 7075613-1 (Version None)
Quarter: 2010Q4

REPORT INFORMATION
  Report Type: 
  Country: None (occurrence: None)
  Receive Date: 20101030
  Receipt Date: 20101011
  Transmission Date: 20110411
  Serious: No
  Sender: FDA-Public Use
  Company Number: US-WYE-H18157110

PATIENT
  Age: 60 Year
  Sex: Female
  Weight: 68.1 kg

DRUGS (7)
  1. PRISTIQ [Suspect]
     Indication: DEPRESSION
     Route: 048
     Dates: start: 20100901, end: 20101001
  2. PRISTIQ [Suspect]
     Route: 048
     Dates: start: 20101001, end: 20101001
  3. TRILIPIX [Concomitant]
  4. TRAZODONE [Concomitant]
  5. ZETIA [Concomitant]
  6. FLEXERIL [Concomitant]
  7. CRESTOR [Concomitant]

REACTIONS (3)
  - PAIN [None]
  - PRURITUS [None]
  - UNEVALUABLE EVENT [None]
